FAERS Safety Report 10170021 (Version 1)
Quarter: 2014Q2

REPORT INFORMATION
  Report Type: Spontaneous
  Country: US (occurrence: US)
  Receive Date: 20140513
  Receipt Date: 20140513
  Transmission Date: 20141212
  Serious: Yes (Other)
  Sender: FDA-Public Use
  Company Number: US-ACTAVIS-2014-09754

PATIENT
  Age: 14 Month
  Sex: Male

DRUGS (1)
  1. OXYCODONE HYDROCHLORIDE (ATLLC) [Suspect]
     Indication: PERIOPERATIVE ANALGESIA
     Dosage: 0.15 MG/KG, UNKNOWN
     Route: 048

REACTIONS (1)
  - Depressed level of consciousness [Unknown]
